FAERS Safety Report 8174271 (Version 5)
Quarter: 2013Q3

REPORT INFORMATION
  Report Type: Report from Study
  Country: NL (occurrence: NL)
  Receive Date: 20111010
  Receipt Date: 20130902
  Transmission Date: 20140515
  Serious: Yes (Hospitalization)
  Sender: FDA-Public Use
  Company Number: PHHO2011NL13691

PATIENT
  Age: 78 Year
  Sex: Female
  Weight: 71 kg

DRUGS (6)
  1. ALISKIREN [Suspect]
     Indication: CARDIOVASCULAR DISORDER
     Route: 048
     Dates: start: 20080519, end: 20110809
  2. METOPROLOL [Suspect]
  3. AMLODIPINE [Suspect]
  4. FUROSEMIDE [Suspect]
  5. PERINDOPRIL [Suspect]
  6. ATORVASTATIN [Concomitant]
     Indication: PROPHYLAXIS
     Dosage: 40 MG, QD
     Dates: start: 2007

REACTIONS (2)
  - Peripheral vascular disorder [Recovering/Resolving]
  - Concomitant disease progression [Recovering/Resolving]
